FAERS Safety Report 23737246 (Version 1)
Quarter: 2024Q2

REPORT INFORMATION
  Report Type: Spontaneous
  Country: TR (occurrence: TR)
  Receive Date: 20240412
  Receipt Date: 20240412
  Transmission Date: 20240716
  Serious: Yes (Other)
  Sender: FDA-Public Use
  Company Number: TR-SANDOZ-SDZ2024TR036873

PATIENT
  Age: 33 Year
  Sex: Female

DRUGS (1)
  1. ZOLEDRONIC ACID [Suspect]
     Active Substance: ZOLEDRONIC ACID
     Indication: Breast cancer
     Dosage: 24 MONTHS. EXTRACTION AREA (MAXILLA)
     Route: 042

REACTIONS (1)
  - Osteonecrosis of jaw [Recovered/Resolved]
